FAERS Safety Report 9912124 (Version 1)
Quarter: 2014Q1

REPORT INFORMATION
  Report Type: Spontaneous
  Country: FR (occurrence: FR)
  Receive Date: 20140219
  Receipt Date: 20140219
  Transmission Date: 20141002
  Serious: Yes (Other)
  Sender: FDA-Public Use
  Company Number: FR-BRISTOL-MYERS SQUIBB COMPANY-20182614

PATIENT
  Age: 59 Year
  Sex: Female

DRUGS (3)
  1. REYATAZ CAPS [Suspect]
     Indication: HIV INFECTION
     Dates: start: 20090414, end: 20130902
  2. NORVIR [Concomitant]
     Dates: start: 20090414
  3. TRUVADA [Concomitant]
     Route: 048
     Dates: start: 20061128

REACTIONS (2)
  - Renal colic [Recovered/Resolved]
  - Hyperbilirubinaemia [Recovered/Resolved]
